FAERS Safety Report 7385536-6 (Version None)
Quarter: 2011Q1

REPORT INFORMATION
  Report Type: 
  Country: None (occurrence: None)
  Receive Date: 20110331
  Receipt Date: 20110322
  Transmission Date: 20110831
  Serious: Yes (Hospitalization)
  Sender: FDA-Public Use
  Company Number: US-BIOGENIDEC-2010BI030993

PATIENT
  Sex: Female

DRUGS (1)
  1. AVONEX [Suspect]
     Indication: MULTIPLE SCLEROSIS
     Route: 030
     Dates: start: 20091114

REACTIONS (4)
  - MULTIPLE SCLEROSIS RELAPSE [None]
  - CARDIAC DISORDER [None]
  - OPTIC NEURITIS [None]
  - MULTIPLE SCLEROSIS [None]
